FAERS Safety Report 8906231 (Version 1)
Quarter: 2012Q4

REPORT INFORMATION
  Report Type: Spontaneous
  Country: US (occurrence: None)
  Receive Date: 20121112
  Receipt Date: 20121112
  Transmission Date: 20130627
  Serious: Yes (Hospitalization)
  Sender: FDA-Public Use
  Company Number: None

PATIENT
  Age: 70 Year
  Sex: Male
  Weight: 104.3 kg

DRUGS (22)
  1. BORTEZOMIB [Suspect]
     Indication: B-CELL SMALL LYMPHOCYTIC LYMPHOMA
     Route: 042
     Dates: start: 20120730, end: 20120806
  2. TEMSIROLIMUS [Suspect]
     Indication: B-CELL SMALL LYMPHOCYTIC LYMPHOMA
     Route: 042
     Dates: start: 20120730, end: 20120806
  3. ACYCLOVIR [Concomitant]
  4. ALLOPURINOL [Concomitant]
  5. ASPIRIN [Concomitant]
  6. BACLOFEN [Concomitant]
  7. CLONAZEPAM [Concomitant]
  8. VITAMIN D [Concomitant]
  9. FEXOFENADINE [Concomitant]
  10. FLUCONAZOLE [Concomitant]
  11. HYDROCHLOROTHIAZIDE [Concomitant]
  12. LORAZEPAM [Concomitant]
  13. MAGNESIUM CITRATE [Concomitant]
  14. OMEPRAZOLE [Concomitant]
  15. ONDANSETRON [Concomitant]
  16. POLYETHYLENE GLYCOL [Concomitant]
  17. PROCHLORPERAZINE [Concomitant]
  18. SEPTRA [Concomitant]
  19. ZOLPIDEM [Concomitant]
  20. CODEINE GUAIFENESIN [Concomitant]
  21. OXYCONTIN [Concomitant]
  22. LEVOFLOXACIN [Concomitant]

REACTIONS (3)
  - Groin pain [None]
  - Thrombocytopenia [None]
  - Lobar pneumonia [None]
